FAERS Safety Report 14151578 (Version 1)
Quarter: 2017Q4

REPORT INFORMATION
  Report Type: Spontaneous
  Country: US (occurrence: None)
  Receive Date: 20171101
  Receipt Date: 20171101
  Transmission Date: 20180321
  Serious: Yes (Hospitalization)
  Sender: FDA-Public Use
  Company Number: None

PATIENT
  Age: 13 Year
  Sex: Male
  Weight: 55.8 kg

DRUGS (6)
  1. VINCRISTINE SULFATE. [Suspect]
     Active Substance: VINCRISTINE SULFATE
     Dates: end: 20171012
  2. THIOGUANINE (6-TG) [Suspect]
     Active Substance: THIOGUANINE ANHYDROUS
     Dates: end: 20171002
  3. CYCLOPHOSPHAMIDE. [Suspect]
     Active Substance: CYCLOPHOSPHAMIDE
     Dates: end: 20170919
  4. CYTARABINE. [Suspect]
     Active Substance: CYTARABINE
     Dates: end: 20170929
  5. METHOTREXATE. [Suspect]
     Active Substance: METHOTREXATE
     Dates: end: 20170926
  6. ONCASPAR [Suspect]
     Active Substance: PEGASPARGASE
     Dates: end: 20170214

REACTIONS (17)
  - Neutropenia [None]
  - Fluid overload [None]
  - Acute kidney injury [None]
  - Sinusitis fungal [None]
  - Nasal mucosal discolouration [None]
  - Chorioretinitis [None]
  - Mental status changes [None]
  - Ill-defined disorder [None]
  - Hypoxia [None]
  - Rhinalgia [None]
  - Pericardial effusion [None]
  - Condition aggravated [None]
  - Pyrexia [None]
  - Oedema peripheral [None]
  - Hypernatraemia [None]
  - Hyperbilirubinaemia [None]
  - Palatal disorder [None]

NARRATIVE: CASE EVENT DATE: 20171021
